FAERS Safety Report 4796675-8 (Version None)
Quarter: 2005Q4

REPORT INFORMATION
  Report Type: 
  Country: None (occurrence: None)
  Receive Date: 20051011
  Receipt Date: 20050307
  Transmission Date: 20060501
  Serious: Yes (Other)
  Sender: FDA-Public Use
  Company Number: US-JNJFOC-20050302500

PATIENT
  Age: 43 Year
  Sex: Female
  Weight: 58.9676 kg

DRUGS (5)
  1. ULTRACET [Suspect]
     Indication: BACK PAIN
     Dates: end: 20050221
  2. TYLENOL PM (ACETAMINOPHEN) UNSPECIFIED [Concomitant]
  3. LEXAPRO [Concomitant]
  4. VITAMINS (VITAMINS) [Concomitant]
  5. ORAL CONTRACEPTIVE NOS (ORAL CONTRACEPTIVE NOS) [Concomitant]

REACTIONS (2)
  - DRUG DEPENDENCE [None]
  - DRUG WITHDRAWAL SYNDROME [None]
